FAERS Safety Report 13716769 (Version 1)
Quarter: 2017Q3

REPORT INFORMATION
  Report Type: Spontaneous
  Country: US (occurrence: US)
  Receive Date: 20170705
  Receipt Date: 20170705
  Transmission Date: 20171127
  Serious: No
  Sender: FDA-Public Use
  Company Number: US-TEVA-729441ACC

PATIENT
  Sex: Female
  Weight: 67 kg

DRUGS (1)
  1. BUPROPION EXTENDED RELEASE XL [Suspect]
     Active Substance: BUPROPION
     Dates: start: 201610

REACTIONS (3)
  - Drug ineffective [Unknown]
  - Crying [Unknown]
  - Increased appetite [Unknown]
